FAERS Safety Report 20405862 (Version 1)
Quarter: 2022Q1

REPORT INFORMATION
  Report Type: Spontaneous
  Country: US (occurrence: US)
  Receive Date: 20220131
  Receipt Date: 20220131
  Transmission Date: 20220423
  Serious: No
  Sender: FDA-Public Use
  Company Number: US-PFIZER INC-2020274393

PATIENT
  Age: 91 Year

DRUGS (1)
  1. PREMARIN [Suspect]
     Active Substance: ESTROGENS, CONJUGATED
     Dosage: UNK
     Dates: start: 1969

REACTIONS (4)
  - Illness [Unknown]
  - Hair colour changes [Unknown]
  - Hormone level abnormal [Unknown]
  - Onychomadesis [Unknown]
